FAERS Safety Report 9363109 (Version 2)
Quarter: 2014Q2

REPORT INFORMATION
  Report Type: Report from Study
  Country: ES (occurrence: ES)
  Receive Date: 20130624
  Receipt Date: 20140612
  Transmission Date: 20141212
  Serious: Yes (Death, Other)
  Sender: FDA-Public Use
  Company Number: ES-ROCHE-1238841

PATIENT
  Sex: Female

DRUGS (6)
  1. TRASTUZUMAB [Suspect]
     Indication: BREAST CANCER METASTATIC
     Dosage: PREVIOUS TREATMENT
     Route: 042
  2. TRASTUZUMAB [Suspect]
     Route: 065
  3. BKM120 [Suspect]
     Indication: BREAST CANCER METASTATIC
     Dosage: 5 PATIENTS
     Route: 048
  4. BKM120 [Suspect]
     Dosage: 12 PATIENTS
     Route: 065
  5. CARBOPLATIN [Suspect]
     Indication: BREAST CANCER METASTATIC
     Route: 065
  6. GEMCITABINE [Suspect]
     Indication: BREAST CANCER METASTATIC
     Route: 065

REACTIONS (14)
  - Respiratory failure [Fatal]
  - Asthenia [Unknown]
  - Mood altered [Unknown]
  - Rash [Unknown]
  - Gamma-glutamyltransferase increased [Unknown]
  - Hypokalaemia [Unknown]
  - Hypersensitivity [Unknown]
  - Affective disorder [Unknown]
  - Hyperglycaemia [Unknown]
  - Aspartate aminotransferase increased [Unknown]
  - Alanine aminotransferase increased [Unknown]
  - Blood glucose increased [Unknown]
  - Anxiety [Unknown]
  - Photosensitivity reaction [Unknown]
